FAERS Safety Report 21838926 (Version 1)
Quarter: 2023Q1

REPORT INFORMATION
  Report Type: Spontaneous
  Country: US (occurrence: None)
  Receive Date: 20230108
  Receipt Date: 20230108
  Transmission Date: 20230418
  Serious: Yes (Hospitalization)
  Sender: FDA-Public Use
  Company Number: None

PATIENT
  Age: 73 Year
  Sex: Male
  Weight: 66.68 kg

DRUGS (2)
  1. AMANTADINE HYDROCHLORIDE [Suspect]
     Active Substance: AMANTADINE HYDROCHLORIDE
     Indication: Tremor
     Dosage: 100 MG BID PO?
     Route: 048
     Dates: start: 20210717, end: 20220922
  2. PREGABALIN [Suspect]
     Active Substance: PREGABALIN

REACTIONS (9)
  - Metabolic encephalopathy [None]
  - Hallucination [None]
  - Therapy cessation [None]
  - Anion gap increased [None]
  - Starvation ketoacidosis [None]
  - Diarrhoea [None]
  - Acute kidney injury [None]
  - Agitation [None]
  - Confusional state [None]

NARRATIVE: CASE EVENT DATE: 20220918
